FAERS Safety Report 14331755 (Version 1)
Quarter: 2017Q4

REPORT INFORMATION
  Report Type: Spontaneous
  Country: US (occurrence: US)
  Receive Date: 20171228
  Receipt Date: 20171228
  Transmission Date: 20180321
  Serious: No
  Sender: FDA-Public Use
  Company Number: US-LEO PHARMA-306599

PATIENT
  Sex: Male

DRUGS (1)
  1. PICATO [Suspect]
     Active Substance: INGENOL MEBUTATE
     Indication: PRECANCEROUS SKIN LESION
     Route: 061
     Dates: start: 20171213, end: 20171215

REACTIONS (5)
  - Application site vesicles [Recovered/Resolved]
  - Application site dryness [Unknown]
  - Application site scab [Unknown]
  - Application site exfoliation [Unknown]
  - Application site pruritus [Unknown]
